FAERS Safety Report 8603652-5 (Version None)
Quarter: 2012Q3

REPORT INFORMATION
  Report Type: 
  Country: None (occurrence: None)
  Receive Date: 20120817
  Receipt Date: 20120815
  Transmission Date: 20120928
  Serious: No
  Sender: FDA-Public Use
  Company Number: US-BAYER-2012-084785

PATIENT
  Age: 33 Year
  Sex: Male

DRUGS (2)
  1. ADVIL [Concomitant]
     Indication: PREMEDICATION
  2. BETASERON [Suspect]
     Indication: MULTIPLE SCLEROSIS
     Dosage: 0.3 MG, QOD
     Route: 058
     Dates: start: 20120709

REACTIONS (2)
  - CHILLS [None]
  - INJECTION SITE RASH [None]
